FAERS Safety Report 8838693 (Version 1)
Quarter: 2012Q4

REPORT INFORMATION
  Report Type: 
  Country: BR (occurrence: BR)
  Receive Date: 20121012
  Receipt Date: 20121012
  Transmission Date: 20130627
  Serious: Yes (Death)
  Sender: FDA-Public Use
  Company Number: BR-PFIZER INC-2012253041

PATIENT
  Age: 81 Year
  Sex: Female

DRUGS (1)
  1. EFEXOR XR [Suspect]
     Indication: DEPRESSION
     Dosage: 150 mg (two capsules of 75mg), daily
     Route: 048
     Dates: start: 20120416

REACTIONS (1)
  - Urinary tract infection [Fatal]
